FAERS Safety Report 21603280 (Version 1)
Quarter: 2022Q4

REPORT INFORMATION
  Report Type: Spontaneous
  Country: US (occurrence: US)
  Receive Date: 20221116
  Receipt Date: 20221116
  Transmission Date: 20230112
  Serious: No
  Sender: FDA-Public Use
  Company Number: US-PFIZER INC-202201296137

PATIENT
  Age: 67 Year
  Sex: Female

DRUGS (4)
  1. DEPO-ESTRADIOL [Suspect]
     Active Substance: ESTRADIOL CYPIONATE
     Dosage: 25 MG, CYCLIC (25MG EVERY 14 DAYS)
     Dates: start: 1998
  2. TESTOSTERONE [Suspect]
     Active Substance: TESTOSTERONE
     Dosage: 25MG PER ML; TAKES HALF ON THE 1ST MONTH AND HALF ON THE 15TH OF THE MONTH
     Dates: start: 1998
  3. METHYLCOBALAMIN [Concomitant]
     Active Substance: METHYLCOBALAMIN
     Dosage: UNK
  4. B3 NIACIN [Concomitant]
     Dosage: UNK

REACTIONS (1)
  - Therapeutic response unexpected [Unknown]
